FAERS Safety Report 23330172 (Version 1)
Quarter: 2023Q4

REPORT INFORMATION
  Report Type: Spontaneous
  Country: GB (occurrence: GB)
  Receive Date: 20231222
  Receipt Date: 20231222
  Transmission Date: 20240109
  Serious: Yes (Hospitalization)
  Sender: FDA-Public Use
  Company Number: None

PATIENT

DRUGS (9)
  1. APIXABAN [Suspect]
     Active Substance: APIXABAN
     Indication: Product used for unknown indication
  2. BECLOMETHASONE [Concomitant]
     Active Substance: BECLOMETHASONE
  3. COCODAMOL [Concomitant]
     Active Substance: ACETAMINOPHEN\CODEINE PHOSPHATE
  4. DIAZEPAM [Concomitant]
     Active Substance: DIAZEPAM
  5. FELODIPINE [Concomitant]
     Active Substance: FELODIPINE
  6. SCOPOLAMINE [Concomitant]
     Active Substance: SCOPOLAMINE
  7. LANSOPRAZOLE [Concomitant]
     Active Substance: LANSOPRAZOLE
  8. SENNA [Concomitant]
     Active Substance: SENNA LEAF\SENNOSIDES\SENNOSIDES A AND B
  9. TERBUTALINE [Concomitant]
     Active Substance: TERBUTALINE

REACTIONS (1)
  - Cerebrovascular accident [Recovered/Resolved with Sequelae]
